FAERS Safety Report 9140937 (Version 1)
Quarter: 2013Q1

REPORT INFORMATION
  Report Type: Spontaneous
  Country: US (occurrence: US)
  Receive Date: 20130305
  Receipt Date: 20130305
  Transmission Date: 20140127
  Serious: No
  Sender: FDA-Public Use
  Company Number: US-ASTRAZENECA-2013SE07492

PATIENT
  Age: 43 Year
  Sex: Male
  Weight: 98.9 kg

DRUGS (28)
  1. CRESTOR [Suspect]
     Indication: BLOOD CHOLESTEROL ABNORMAL
     Route: 048
     Dates: start: 201207
  2. CRESTOR [Suspect]
     Indication: BLOOD TRIGLYCERIDES ABNORMAL
     Route: 048
     Dates: start: 201207
  3. ZESTRIL [Suspect]
     Route: 048
  4. TENORMIN [Suspect]
     Route: 048
  5. ACYCLOVIR [Concomitant]
  6. ALPRAZOLAM [Concomitant]
  7. AMOX CLAV [Concomitant]
  8. ANDROGEL [Concomitant]
  9. LOW DOSE ASPIRIN [Concomitant]
  10. BACLOFEN [Concomitant]
  11. CIALIS [Concomitant]
  12. DIPHENOXYLATE [Concomitant]
  13. FEXOFENADINE [Concomitant]
  14. NEURONTIN [Concomitant]
  15. IBUPROFEN [Concomitant]
  16. ISENTRESS [Concomitant]
  17. LOVAZA [Concomitant]
  18. METFORMIN [Concomitant]
  19. OXYCONTIN [Concomitant]
  20. PANTOPRAZOLE [Concomitant]
  21. PROAIR [Concomitant]
  22. PROCTOFOAM [Concomitant]
  23. GRAM [Concomitant]
  24. PROMETHAZINE [Concomitant]
  25. PROMETHAGAN [Concomitant]
  26. TRUVADA [Concomitant]
  27. VITAMIN D3 [Concomitant]
  28. VITAMIN B12 [Concomitant]

REACTIONS (2)
  - Aphagia [Not Recovered/Not Resolved]
  - Abdominal pain upper [Not Recovered/Not Resolved]
